FAERS Safety Report 12306376 (Version 1)
Quarter: 2016Q2

REPORT INFORMATION
  Report Type: Spontaneous
  Country: BG (occurrence: BG)
  Receive Date: 20160426
  Receipt Date: 20160426
  Transmission Date: 20160815
  Serious: Yes (Other)
  Sender: FDA-Public Use
  Company Number: BG-BAYER-2016-074473

PATIENT
  Age: 72 Year
  Sex: Male

DRUGS (2)
  1. NEXAVAR [Suspect]
     Active Substance: SORAFENIB
     Indication: HEPATOCELLULAR CARCINOMA
     Dosage: 400 MG, BID
     Route: 048
     Dates: start: 201006, end: 201208
  2. NEXAVAR [Suspect]
     Active Substance: SORAFENIB
     Indication: HEPATOCELLULAR CARCINOMA
     Dosage: 400 MG, BID
     Route: 048
     Dates: start: 201304

REACTIONS (7)
  - Fatigue [None]
  - Metastases to lung [None]
  - Hepatocellular carcinoma [None]
  - Metastases to bone [None]
  - Weight decreased [None]
  - Pleural effusion [None]
  - Hiccups [None]

NARRATIVE: CASE EVENT DATE: 201006
